FAERS Safety Report 10771680 (Version 6)
Quarter: 2015Q2

REPORT INFORMATION
  Report Type: Report from Study
  Country: US (occurrence: US)
  Receive Date: 20150206
  Receipt Date: 20150626
  Transmission Date: 20150821
  Serious: Yes (Hospitalization, Other)
  Sender: FDA-Public Use
  Company Number: US-SANOFI-AVENTIS-2013SA048046

PATIENT
  Age: 70 Year
  Sex: Female

DRUGS (5)
  1. AUBAGIO [Suspect]
     Active Substance: TERIFLUNOMIDE
     Indication: MULTIPLE SCLEROSIS
     Route: 048
     Dates: start: 201212
  2. AUBAGIO [Suspect]
     Active Substance: TERIFLUNOMIDE
     Indication: MULTIPLE SCLEROSIS
     Route: 048
     Dates: start: 201501
  3. AUBAGIO [Suspect]
     Active Substance: TERIFLUNOMIDE
     Indication: MULTIPLE SCLEROSIS
     Route: 048
  4. AUBAGIO [Suspect]
     Active Substance: TERIFLUNOMIDE
     Indication: MULTIPLE SCLEROSIS
     Route: 048
     Dates: start: 20140102, end: 201501
  5. ROBAXIN [Concomitant]
     Active Substance: METHOCARBAMOL

REACTIONS (23)
  - Upper-airway cough syndrome [Unknown]
  - Depression [Unknown]
  - Weight decreased [Unknown]
  - Headache [Unknown]
  - Bradyphrenia [Unknown]
  - Pain in extremity [Not Recovered/Not Resolved]
  - Unevaluable event [Unknown]
  - Feeling abnormal [Unknown]
  - Nodule [Unknown]
  - Back disorder [Not Recovered/Not Resolved]
  - Decreased appetite [Unknown]
  - Alopecia [Not Recovered/Not Resolved]
  - Drug dose omission [Unknown]
  - Dysphonia [Unknown]
  - Spinal pain [Unknown]
  - Malaise [Unknown]
  - Spinal fusion surgery [Unknown]
  - Memory impairment [Unknown]
  - Thought blocking [Unknown]
  - Confusional state [Unknown]
  - Myocardial infarction [Unknown]
  - Thinking abnormal [Unknown]
  - Neck pain [Unknown]

NARRATIVE: CASE EVENT DATE: 201501
